FAERS Safety Report 5676156-X (Version None)
Quarter: 2008Q1

REPORT INFORMATION
  Report Type: 
  Country: None (occurrence: None)
  Receive Date: 20080321
  Receipt Date: 20080314
  Transmission Date: 20080703
  Serious: No
  Sender: FDA-Public Use
  Company Number: US-BAXTER-2008BH002329

PATIENT
  Age: 54 Year
  Sex: Male
  Weight: 88 kg

DRUGS (8)
  1. HEPARIN SODIUM [Suspect]
     Indication: CYSTITIS INTERSTITIAL
     Route: 043
     Dates: start: 20040101, end: 20080312
  2. FLOMOX [Concomitant]
     Indication: URINARY TRACT INFECTION
     Route: 048
     Dates: start: 20070101
  3. ELMIRON [Concomitant]
     Indication: CYSTITIS INTERSTITIAL
     Route: 048
     Dates: start: 19990101
  4. ZOLOFT [Concomitant]
     Indication: DEPRESSION
     Route: 048
  5. KADIAN ^KNOLL^ [Concomitant]
     Indication: PAIN
     Route: 048
  6. ALDRAZOLAN [Concomitant]
     Indication: ANXIETY
     Route: 048
  7. ZOMIG [Concomitant]
     Indication: MIGRAINE
     Route: 048
  8. HYDROMORPHONE HCL [Concomitant]
     Indication: PAIN
     Dosage: DOSE UNIT:UNKNOWN
     Route: 048

REACTIONS (6)
  - BACK PAIN [None]
  - BURNING SENSATION [None]
  - INFLUENZA LIKE ILLNESS [None]
  - LIP SWELLING [None]
  - RASH [None]
  - URINARY HESITATION [None]
